FAERS Safety Report 5717037-2 (Version None)
Quarter: 2008Q2

REPORT INFORMATION
  Report Type: 
  Country: None (occurrence: None)
  Receive Date: 20080424
  Receipt Date: 20080414
  Transmission Date: 20081010
  Serious: Yes (Other)
  Sender: FDA-Public Use
  Company Number: US-PFIZER INC-2007069589

PATIENT
  Sex: Male
  Weight: 109 kg

DRUGS (2)
  1. CELEBREX [Suspect]
     Indication: JOINT SWELLING
     Route: 048
     Dates: start: 20010710, end: 20040401
  2. BEXTRA [Suspect]

REACTIONS (2)
  - CARDIOVASCULAR DISORDER [None]
  - CEREBROVASCULAR ACCIDENT [None]
